FAERS Safety Report 4867508-6 (Version None)
Quarter: 2005Q4

REPORT INFORMATION
  Report Type: 
  Country: None (occurrence: None)
  Receive Date: 20051228
  Receipt Date: 20051222
  Transmission Date: 20060501
  Serious: Yes (Life-Threatening, Hospitalization)
  Sender: FDA-Public Use
  Company Number: AT-BRISTOL-MYERS SQUIBB COMPANY-13228705

PATIENT
  Age: 55 Year
  Sex: Female
  Weight: 100 kg

DRUGS (4)
  1. ABILIFY [Suspect]
  2. SEMAP [Suspect]
     Route: 048
  3. LEXOTANIL [Suspect]
     Route: 048
  4. SINEQUAN [Suspect]
     Indication: DEPRESSION
     Route: 048

REACTIONS (6)
  - AGGRESSION [None]
  - FLUID INTAKE REDUCED [None]
  - ORAL INTAKE REDUCED [None]
  - PULMONARY EMBOLISM [None]
  - RESTLESSNESS [None]
  - SLEEP DISORDER [None]
